APPROVED DRUG PRODUCT: FORZINITY
Active Ingredient: ELAMIPRETIDE HYDROCHLORIDE
Strength: EQ 280MG BASE/3.5ML (EQ 80MG BASE/ML)
Dosage Form/Route: SOLUTION;SUBCUTANEOUS
Application: N215244 | Product #001
Applicant: STEALTH BIOTHERAPEUTICS INC
Approved: Sep 19, 2025 | RLD: Yes | RS: Yes | Type: RX

PATENTS:
Patent 12268724 | Expires: Feb 28, 2034
Patent 11771734 | Expires: Feb 28, 2034
Patent 11083772 | Expires: Feb 28, 2034
Patent 11083771 | Expires: Feb 28, 2034
Patent 9687519 | Expires: Feb 28, 2034
Patent 7576061 | Expires: Jan 20, 2027

EXCLUSIVITY:
Code: NCE | Date: Sep 19, 2030